FAERS Safety Report 24826985 (Version 1)
Quarter: 2025Q1

REPORT INFORMATION
  Report Type: Spontaneous
  Country: US (occurrence: US)
  Receive Date: 20250109
  Receipt Date: 20250109
  Transmission Date: 20250408
  Serious: No
  Sender: VERONA PHARMA
  Company Number: US-VERONA PHARMA-VER-000787

PATIENT
  Age: 72 Year
  Sex: Male

DRUGS (1)
  1. OHTUVAYRE [Suspect]
     Active Substance: ENSIFENTRINE
     Indication: Mycobacterium avium complex infection
     Dosage: 3 MILLIGRAM, BID
     Dates: start: 20240930

REACTIONS (6)
  - Oropharyngeal discomfort [Unknown]
  - Dysphonia [Unknown]
  - Dry mouth [Unknown]
  - Malaise [Unknown]
  - Drug effect less than expected [Unknown]
  - Product use in unapproved indication [Unknown]
